FAERS Safety Report 7699805-3 (Version None)
Quarter: 2011Q3

REPORT INFORMATION
  Report Type: 
  Country: None (occurrence: None)
  Receive Date: 20110822
  Receipt Date: 20110815
  Transmission Date: 20111222
  Serious: No
  Sender: FDA-Public Use
  Company Number: US-BIOGENIDEC-2011BI031177

PATIENT
  Age: 40 Year
  Sex: Female

DRUGS (3)
  1. AVONEX [Concomitant]
     Indication: MULTIPLE SCLEROSIS
     Route: 030
     Dates: start: 20100701
  2. TYSABRI [Suspect]
     Indication: MULTIPLE SCLEROSIS
     Route: 042
     Dates: start: 20100713
  3. AVONEX [Concomitant]
     Route: 030
     Dates: start: 20071019, end: 20080425

REACTIONS (4)
  - VISUAL IMPAIRMENT [None]
  - INCONTINENCE [None]
  - FATIGUE [None]
  - BALANCE DISORDER [None]
